FAERS Safety Report 6683369-7 (Version None)
Quarter: 2010Q2

REPORT INFORMATION
  Report Type: 
  Country: None (occurrence: None)
  Receive Date: 20100415
  Receipt Date: 20090918
  Transmission Date: 20101027
  Serious: No
  Sender: FDA-Public Use
  Company Number: A0808065A

PATIENT
  Sex: Male

DRUGS (10)
  1. LEUKERAN [Suspect]
     Dosage: 2TAB TWICE PER DAY
     Route: 048
     Dates: start: 20090829
  2. COUMADIN [Concomitant]
  3. LASIX [Concomitant]
  4. DIGOXIN [Concomitant]
  5. PRAVACHOL [Concomitant]
  6. TOPROL-XL [Concomitant]
  7. FOLIC ACID [Concomitant]
  8. DOXYCYCLINE [Concomitant]
  9. UNKNOWN MEDICATION [Concomitant]
  10. PULMICORT [Concomitant]
     Route: 055

REACTIONS (1)
  - DRUG INEFFECTIVE [None]
